FAERS Safety Report 9786184 (Version 1)
Quarter: 2013Q4

REPORT INFORMATION
  Report Type: Spontaneous
  Country: ES (occurrence: None)
  Receive Date: 20131224
  Receipt Date: 20131224
  Transmission Date: 20140711
  Serious: Yes (Death, Hospitalization)
  Sender: FDA-Public Use
  Company Number: AUR-APL-2013-10634

PATIENT
  Age: 78 Year
  Sex: Female

DRUGS (1)
  1. METFORMIN [Suspect]
     Indication: TYPE 2 DIABETES MELLITUS
     Dosage: 850 MG (850 MG, 1 IN 1 D), UNKNOWN

REACTIONS (18)
  - Angina pectoris [None]
  - Diarrhoea [None]
  - Bradycardia [None]
  - Metabolic acidosis [None]
  - Respiratory failure [None]
  - Bundle branch block right [None]
  - Continuous haemodiafiltration [None]
  - Multi-organ failure [None]
  - Lactic acidosis [None]
  - Nephropathy toxic [None]
  - Renal impairment [None]
  - Ventricular dysfunction [None]
  - Abdominal pain upper [None]
  - Hyperhidrosis [None]
  - Anuria [None]
  - Blood pressure diastolic decreased [None]
  - Blood sodium decreased [None]
  - Blood potassium increased [None]
